FAERS Safety Report 12369885 (Version 1)
Quarter: 2016Q2

REPORT INFORMATION
  Report Type: Spontaneous
  Country: FR (occurrence: FR)
  Receive Date: 20160516
  Receipt Date: 20160516
  Transmission Date: 20160815
  Serious: Yes (Hospitalization)
  Sender: FDA-Public Use
  Company Number: FR-ALLERGAN-1656602US

PATIENT
  Age: 53 Year
  Sex: Female

DRUGS (2)
  1. ESMYA [Suspect]
     Active Substance: ULIPRISTAL ACETATE
     Indication: HAEMORRHAGE
  2. ESMYA [Suspect]
     Active Substance: ULIPRISTAL ACETATE
     Indication: UTERINE LEIOMYOMA
     Dosage: UNK
     Dates: start: 201511, end: 201601

REACTIONS (1)
  - Pulmonary embolism [Recovered/Resolved]

NARRATIVE: CASE EVENT DATE: 201601
